FAERS Safety Report 7192993-7 (Version None)
Quarter: 2010Q4

REPORT INFORMATION
  Report Type: 
  Country: None (occurrence: None)
  Receive Date: 20101223
  Receipt Date: 20100929
  Transmission Date: 20110411
  Serious: No
  Sender: FDA-Public Use
  Company Number: US-BAYER-201022088BCC

PATIENT
  Sex: Male
  Weight: 104.55 kg

DRUGS (1)
  1. ALEVE [Suspect]
     Dosage: UNK
     Route: 048
     Dates: start: 20100928

REACTIONS (1)
  - URTICARIA [None]
